FAERS Safety Report 15141669 (Version 1)
Quarter: 2018Q3

REPORT INFORMATION
  Report Type: Spontaneous
  Country: PL (occurrence: PL)
  Receive Date: 20180713
  Receipt Date: 20180713
  Transmission Date: 20181010
  Serious: Yes (Other)
  Sender: FDA-Public Use
  Company Number: PL-PFIZER INC-2018278599

PATIENT
  Age: 59 Year
  Sex: Male

DRUGS (4)
  1. ENCORTON [Suspect]
     Active Substance: PREDNISONE
     Indication: PROSTATE CANCER
     Dosage: UNK, CYCLIC
     Route: 065
     Dates: start: 201502, end: 201505
  2. DOCETAXEL. [Suspect]
     Active Substance: DOCETAXEL
     Indication: PROSTATE CANCER
     Dosage: 6 X, CYCLIC
     Route: 065
     Dates: start: 201502, end: 201505
  3. ELIGARD [Suspect]
     Active Substance: LEUPROLIDE ACETATE
     Indication: PROSTATE CANCER
     Dosage: 45 MG, EVERY 6 MONTHS
     Route: 065
     Dates: start: 201502, end: 201505
  4. XTANDI [Suspect]
     Active Substance: ENZALUTAMIDE
     Indication: PROSTATE CANCER
     Dosage: 160 MG, 1X/DAY
     Route: 048
     Dates: start: 201705

REACTIONS (3)
  - Bone pain [Unknown]
  - Neoplasm progression [Unknown]
  - Fatigue [Unknown]
